FAERS Safety Report 8327260-9 (Version None)
Quarter: 2012Q2

REPORT INFORMATION
  Report Type: 
  Country: None (occurrence: None)
  Receive Date: 20120502
  Receipt Date: 20120426
  Transmission Date: 20120825
  Serious: Yes (Hospitalization)
  Sender: FDA-Public Use
  Company Number: DE-AMGEN-DEUSP2012019240

PATIENT
  Sex: Male

DRUGS (15)
  1. RITUXIMAB [Suspect]
     Indication: MALIGNANT LYMPHOID NEOPLASM
     Dosage: 769 MG, Q2WK
     Route: 042
     Dates: start: 20120213
  2. PREDNISOLONE [Suspect]
     Indication: MALIGNANT LYMPHOID NEOPLASM
     Dosage: 100 MG, UNK
     Route: 065
     Dates: start: 20120214, end: 20120218
  3. VINCRISTINE [Suspect]
     Indication: MALIGNANT LYMPHOID NEOPLASM
     Dosage: 2 MG, Q2WK
     Route: 042
     Dates: start: 20120214
  4. AMLODIPINE [Concomitant]
     Dosage: 15 MG, QD
     Dates: start: 20120207
  5. CARBAMAZEPINE [Concomitant]
     Dosage: 400 MG, QD
     Route: 048
     Dates: start: 20120207
  6. PEGFILGRASTIM [Suspect]
     Indication: MALIGNANT LYMPHOID NEOPLASM
     Dosage: UNK, Q2WK
     Route: 058
     Dates: start: 20120217
  7. CYCLOPHOSPHAMIDE [Suspect]
     Indication: MALIGNANT LYMPHOID NEOPLASM
     Dosage: 1537.5 MG, Q2WK
     Route: 042
     Dates: start: 20120214
  8. ATACAND [Concomitant]
     Indication: HYPERTENSION
     Dosage: 16 MG, UNK
     Route: 048
     Dates: start: 20120207
  9. METOPROLOL TARTRATE [Concomitant]
     Indication: HYPERTENSION
     Dosage: 47.5 MG, UNK
     Route: 048
     Dates: start: 20120207
  10. HYDROCHLOROTHIAZIDE [Concomitant]
     Indication: HYPERTENSION
     Dosage: 12.5 MG, QD
     Route: 048
     Dates: start: 20120207
  11. STANGYL                            /00051803/ [Concomitant]
     Dosage: 25 MG, QD
     Route: 048
     Dates: start: 20120207
  12. ANTINEOPLASTIC AGENTS [Concomitant]
     Dosage: UNK
     Dates: start: 20120228
  13. DOXORUBICIN HCL [Suspect]
     Indication: MALIGNANT LYMPHOID NEOPLASM
     Dosage: 102.5 MG, Q2WK
     Route: 042
     Dates: start: 20120214
  14. OXYBUTYNIN                         /00538902/ [Concomitant]
     Dosage: 2.5 MG, BID
     Dates: start: 20120207
  15. LYRICA [Concomitant]
     Dosage: 300 MG, QD
     Dates: start: 20120207

REACTIONS (1)
  - THROMBOPHLEBITIS SUPERFICIAL [None]
